FAERS Safety Report 7475216-0 (Version None)
Quarter: 2011Q2

REPORT INFORMATION
  Report Type: 
  Country: None (occurrence: None)
  Receive Date: 20110512
  Receipt Date: 20110428
  Transmission Date: 20111010
  Serious: Yes (Death, Hospitalization, Other)
  Sender: FDA-Public Use
  Company Number: US-ELI_LILLY_AND_COMPANY-US201104001737

PATIENT
  Sex: Female

DRUGS (9)
  1. NITRO                              /00003201/ [Concomitant]
  2. ANTIBIOTICS [Concomitant]
     Indication: PRODUCT USED FOR UNKNOWN INDICATION
     Dosage: UNK
     Route: 065
  3. IMDUR [Concomitant]
  4. CALCIUM [Concomitant]
  5. CRESTOR [Concomitant]
  6. INSULIN [Concomitant]
  7. FORTEO [Suspect]
     Indication: OSTEOPOROSIS
     Dosage: 20 UG, QD
     Route: 065
     Dates: start: 20110325, end: 20110404
  8. VITAMIN D [Concomitant]
  9. SLOW MAG [Concomitant]

REACTIONS (3)
  - STAPHYLOCOCCAL INFECTION [None]
  - PNEUMONIA [None]
  - SEPSIS [None]
